FAERS Safety Report 12083972 (Version 1)
Quarter: 2016Q1

REPORT INFORMATION
  Report Type: Spontaneous
  Country: US (occurrence: None)
  Receive Date: 20160216
  Receipt Date: 20160216
  Transmission Date: 20160526
  Serious: Yes (Other)
  Sender: FDA-Public Use
  Company Number: None

PATIENT
  Age: 27 Year
  Sex: Female
  Weight: 71.22 kg

DRUGS (2)
  1. GUMMY PROBIOTICS [Concomitant]
  2. LEVAQUIN [Suspect]
     Active Substance: LEVOFLOXACIN
     Indication: DIVERTICULITIS
     Dosage: 1 PILLSA ONCE DAILY TAKEN BY MOUTH
     Route: 048
     Dates: start: 20160202, end: 20160214

REACTIONS (9)
  - Activities of daily living impaired [None]
  - Rash [None]
  - Confusional state [None]
  - Headache [None]
  - Hypoaesthesia [None]
  - Arthralgia [None]
  - Speech disorder [None]
  - Mental impairment [None]
  - Skin texture abnormal [None]

NARRATIVE: CASE EVENT DATE: 20160204
